FAERS Safety Report 14647399 (Version 2)
Quarter: 2018Q2

REPORT INFORMATION
  Report Type: Spontaneous
  Country: US (occurrence: US)
  Receive Date: 20180316
  Receipt Date: 20180409
  Transmission Date: 20180711
  Serious: No
  Sender: FDA-Public Use
  Company Number: US-PFIZER INC-2018110013

PATIENT
  Age: 13 Year
  Sex: Male
  Weight: 68.4 kg

DRUGS (1)
  1. EUCRISA [Suspect]
     Active Substance: CRISABOROLE
     Indication: ECZEMA
     Dosage: UNK, ONCE A DAY AT AFFECTED AREA
     Route: 061

REACTIONS (3)
  - Application site pain [Recovering/Resolving]
  - Skin irritation [Unknown]
  - Drug ineffective [Unknown]
